FAERS Safety Report 25934678 (Version 3)
Quarter: 2025Q4

REPORT INFORMATION
  Report Type: Spontaneous
  Country: US (occurrence: US)
  Receive Date: 20251017
  Receipt Date: 20251212
  Transmission Date: 20260117
  Serious: Yes (Hospitalization, Other)
  Sender: RANBAXY
  Company Number: US-SUN PHARMACEUTICAL INDUSTRIES INC-2025R1-530773

PATIENT
  Sex: Female

DRUGS (2)
  1. CLINDAMYCIN [Suspect]
     Active Substance: CLINDAMYCIN
     Indication: Antibiotic prophylaxis
     Dosage: 300 MILLIGRAM
     Route: 048
     Dates: start: 20250923, end: 20251003
  2. CLINDAMYCIN [Suspect]
     Active Substance: CLINDAMYCIN
     Indication: Infection

REACTIONS (5)
  - Dyspnoea [Recovering/Resolving]
  - Product taste abnormal [Unknown]
  - Chest pain [Unknown]
  - Dysphagia [Unknown]
  - Feeling abnormal [Unknown]
